FAERS Safety Report 23510801 (Version 1)
Quarter: 2024Q1

REPORT INFORMATION
  Report Type: Spontaneous
  Country: US (occurrence: US)
  Receive Date: 20240212
  Receipt Date: 20240212
  Transmission Date: 20240409
  Serious: No
  Sender: FDA-Public Use
  Company Number: US-ABBVIE-5624132

PATIENT
  Age: 60 Year
  Sex: Male

DRUGS (1)
  1. SKYRIZI [Suspect]
     Active Substance: RISANKIZUMAB-RZAA
     Indication: Psoriasis
     Route: 058

REACTIONS (13)
  - Joint range of motion decreased [Unknown]
  - Sciatica [Unknown]
  - Bone pain [Not Recovered/Not Resolved]
  - Gait disturbance [Unknown]
  - Tendon pain [Unknown]
  - Arthralgia [Unknown]
  - Arthritis [Unknown]
  - Joint swelling [Unknown]
  - Papule [Unknown]
  - Myalgia [Unknown]
  - Muscle tightness [Unknown]
  - Muscle spasms [Unknown]
  - Localised oedema [Unknown]

NARRATIVE: CASE EVENT DATE: 20230401
